FAERS Safety Report 10509624 (Version 2)
Quarter: 2016Q2

REPORT INFORMATION
  Report Type: Report from Study
  Country: BR (occurrence: BR)
  Receive Date: 20141010
  Receipt Date: 20160509
  Transmission Date: 20160815
  Serious: Yes (Hospitalization, Other)
  Sender: FDA-Public Use
  Company Number: BR-ROCHE-1472070

PATIENT
  Age: 57 Year
  Sex: Female
  Weight: 53 kg

DRUGS (5)
  1. ACTEMRA [Suspect]
     Active Substance: TOCILIZUMAB
     Indication: RHEUMATOID ARTHRITIS
     Route: 042
     Dates: start: 20140802, end: 20160427
  2. UNSPECIFIED DRUG [Concomitant]
     Active Substance: UNSPECIFIED INGREDIENT
     Route: 065
  3. ATENOLOL. [Concomitant]
     Active Substance: ATENOLOL
     Indication: HYPERTENSION
     Dosage: IN THE MORNING
     Route: 065
  4. CAPTOPRIL. [Concomitant]
     Active Substance: CAPTOPRIL
     Indication: HYPERTENSION
  5. LOSARTAN. [Concomitant]
     Active Substance: LOSARTAN
     Dosage: ONE TABLET IN THE MORNING AND IN THE AFTERNOON
     Route: 065

REACTIONS (10)
  - Intervertebral disc protrusion [Recovering/Resolving]
  - Bone disorder [Unknown]
  - Therapeutic response decreased [Unknown]
  - Ill-defined disorder [Not Recovered/Not Resolved]
  - Hand deformity [Not Recovered/Not Resolved]
  - Syncope [Unknown]
  - Rheumatic disorder [Not Recovered/Not Resolved]
  - Back pain [Not Recovered/Not Resolved]
  - Nosocomial infection [Recovering/Resolving]
  - Rheumatoid arthritis [Not Recovered/Not Resolved]

NARRATIVE: CASE EVENT DATE: 201510
